FAERS Safety Report 25239886 (Version 1)
Quarter: 2025Q2

REPORT INFORMATION
  Report Type: Spontaneous
  Country: US (occurrence: None)
  Receive Date: 20250425
  Receipt Date: 20250425
  Transmission Date: 20250717
  Serious: No
  Sender: FDA-CTU
  Company Number: None

PATIENT

DRUGS (2)
  1. LOSARTAN [Suspect]
     Active Substance: LOSARTAN
  2. OLMESARTAN [Suspect]
     Active Substance: OLMESARTAN

REACTIONS (2)
  - Blood pressure inadequately controlled [None]
  - Palpitations [None]
